FAERS Safety Report 6197359-4 (Version None)
Quarter: 2009Q2

REPORT INFORMATION
  Report Type: 
  Country: None (occurrence: None)
  Receive Date: 20090521
  Receipt Date: 20090518
  Transmission Date: 20091009
  Serious: No
  Sender: FDA-Public Use
  Company Number: BR-ASTRAZENECA-2009UW12589

PATIENT
  Age: 35 Year
  Sex: Male
  Weight: 78 kg

DRUGS (5)
  1. ATENOLOL [Suspect]
     Route: 048
     Dates: start: 20090302
  2. CRESTOR [Suspect]
     Route: 048
     Dates: start: 20090313
  3. ENALAPRIL [Concomitant]
     Dates: start: 20090313
  4. ASPIRIN [Concomitant]
     Dates: start: 20090313
  5. CLOPIDOGREL [Concomitant]
     Dates: start: 20090313

REACTIONS (1)
  - HYPERCHOLESTEROLAEMIA [None]
